FAERS Safety Report 9223206 (Version 1)
Quarter: 2013Q2

REPORT INFORMATION
  Report Type: Spontaneous
  Country: PL (occurrence: PL)
  Receive Date: 20130410
  Receipt Date: 20130410
  Transmission Date: 20140414
  Serious: Yes (Death, Life-Threatening)
  Sender: FDA-Public Use
  Company Number: PL-TEVA-396214ISR

PATIENT
  Age: 33 Year
  Sex: Female

DRUGS (4)
  1. CISPLATIN [Suspect]
     Indication: PRIMARY MEDIASTINAL LARGE B-CELL LYMPHOMA
     Dosage: 158 MG (100 MG/M2) DAYS 1-4
     Route: 042
  2. ETOPOSIDE [Concomitant]
     Indication: PRIMARY MEDIASTINAL LARGE B-CELL LYMPHOMA
     Dosage: 63.2 MG (40 MG/M2) D1-4
     Route: 042
  3. METHYLPREDNISOLONE [Concomitant]
     Indication: PRIMARY MEDIASTINAL LARGE B-CELL LYMPHOMA
     Dosage: 790MG (500 MG/M2) 1-4
     Route: 042
  4. CYTARABINE [Concomitant]
     Indication: PRIMARY MEDIASTINAL LARGE B-CELL LYMPHOMA
     Dosage: 3.16 [UNIT NOT STATED] (2 G/M2) DAY 5
     Route: 042

REACTIONS (14)
  - Accidental overdose [Fatal]
  - Toxicity to various agents [Fatal]
  - Inappropriate schedule of drug administration [Fatal]
  - Deafness [Not Recovered/Not Resolved]
  - Renal failure [Not Recovered/Not Resolved]
  - Hepatic failure [Not Recovered/Not Resolved]
  - Bone marrow failure [Not Recovered/Not Resolved]
  - Dyspnoea [Not Recovered/Not Resolved]
  - Circulatory collapse [Not Recovered/Not Resolved]
  - Cardiomyopathy [Not Recovered/Not Resolved]
  - Supraventricular tachycardia [Not Recovered/Not Resolved]
  - Atrial fibrillation [Not Recovered/Not Resolved]
  - Loss of consciousness [Not Recovered/Not Resolved]
  - Cardiac arrest [Not Recovered/Not Resolved]
